FAERS Safety Report 9398860 (Version 2)
Quarter: 2013Q3

REPORT INFORMATION
  Report Type: Spontaneous
  Country: US (occurrence: US)
  Receive Date: 20130712
  Receipt Date: 20130716
  Transmission Date: 20140515
  Serious: No
  Sender: FDA-Public Use
  Company Number: US-TEVA-418229USA

PATIENT
  Sex: Female
  Weight: 80.36 kg

DRUGS (6)
  1. FENTORA [Suspect]
     Indication: TRIGEMINAL NEURALGIA
     Route: 048
     Dates: start: 2010
  2. AVINZA [Concomitant]
     Indication: PAIN
  3. VICODIN [Concomitant]
     Indication: PAIN
  4. WELLBUTRIN [Concomitant]
     Indication: DEPRESSION
  5. SEROQUEL [Concomitant]
  6. SAVELLA [Concomitant]

REACTIONS (2)
  - Pain [Recovered/Resolved]
  - Off label use [Not Recovered/Not Resolved]
